FAERS Safety Report 7001666-2 (Version None)
Quarter: 2010Q3

REPORT INFORMATION
  Report Type: 
  Country: None (occurrence: None)
  Receive Date: 20100916
  Receipt Date: 20100903
  Transmission Date: 20110219
  Serious: Yes (Death, Hospitalization)
  Sender: FDA-Public Use
  Company Number: 2009AC000202

PATIENT
  Age: 71 Year
  Sex: Female

DRUGS (55)
  1. DIGOXIN [Suspect]
     Indication: CARDIAC DISORDER
     Dosage: 0.125 MG, QD; PO
     Route: 048
     Dates: start: 20020224, end: 20071101
  2. DIGITEK [Suspect]
     Dosage: .25 MG; 1X; PO
     Route: 048
     Dates: start: 20031001, end: 20040301
  3. DIGOXIN [Suspect]
     Dosage: 0.250 MG; PO
     Route: 048
     Dates: start: 20050101
  4. DIGOXIN [Suspect]
     Dosage: 125 MCG; IV
     Route: 042
     Dates: start: 20071001, end: 20071101
  5. BUMETANIDE [Concomitant]
  6. WARFARIN SODIUM [Concomitant]
  7. CYCLOBENZAPRINE [Concomitant]
  8. CLORAZEPATE DIPOTASSIUM [Concomitant]
  9. JANUVIA [Concomitant]
  10. COMBIVENT [Concomitant]
  11. CARVEDILOL [Concomitant]
  12. METOLAZONE [Concomitant]
  13. CARTIA XT [Concomitant]
  14. TRAMADOL HCL [Concomitant]
  15. SIMVASTATIN [Concomitant]
  16. PREDNISONE [Concomitant]
  17. HYDROXYZINE HCL [Concomitant]
  18. NEXIUM [Concomitant]
  19. POTASSIUM CHLORIDE [Concomitant]
  20. XOPENEX [Concomitant]
  21. LANTUS [Concomitant]
  22. NITROFURANTOIN-MACRO [Concomitant]
  23. ALPHAGAN [Concomitant]
  24. LISINOPRIL [Concomitant]
  25. VIGAMOX [Concomitant]
  26. IPRATROPIUM BROMIDE [Concomitant]
  27. CLINDAMYCIN HCL [Concomitant]
  28. HUMALOG [Concomitant]
  29. CEFADROXIL [Concomitant]
  30. FUROSEMIDE [Concomitant]
  31. CLOPIDOGREL BISULFATE [Concomitant]
  32. TOPROL-XL [Concomitant]
  33. CARDIZEM [Concomitant]
  34. BUMEX [Concomitant]
  35. COUMADIN [Concomitant]
  36. POTASSIUM [Concomitant]
  37. CARDIZEM [Concomitant]
  38. COMBIVENT [Concomitant]
  39. COREG [Concomitant]
  40. INSULIN [Concomitant]
  41. CORDARONE [Concomitant]
  42. PROTONIX [Concomitant]
  43. GLUCOPHAGE [Concomitant]
  44. WELLBUTRIN [Concomitant]
  45. LOPRESSOR [Concomitant]
  46. MAGNESIUM OXIDE [Concomitant]
  47. AVADIA [Concomitant]
  48. COLACE [Concomitant]
  49. PREVACID [Concomitant]
  50. ASPIRIN [Concomitant]
  51. AVELOX [Concomitant]
  52. REVATIO [Concomitant]
  53. HEPARIN [Concomitant]
  54. DIAMOX SRC [Concomitant]
  55. XOPENEX [Concomitant]

REACTIONS (47)
  - ANAEMIA [None]
  - ANXIETY [None]
  - ATRIAL FIBRILLATION [None]
  - BLOOD GLUCOSE INCREASED [None]
  - BLOOD SODIUM DECREASED [None]
  - CARDIAC FAILURE CONGESTIVE [None]
  - CARDIO-RESPIRATORY ARREST [None]
  - CARDIOGENIC SHOCK [None]
  - CELLULITIS [None]
  - CEREBRAL HYPOPERFUSION [None]
  - CEREBROVASCULAR ACCIDENT [None]
  - CHRONIC OBSTRUCTIVE PULMONARY DISEASE [None]
  - CONDITION AGGRAVATED [None]
  - CONFUSIONAL STATE [None]
  - COR PULMONALE [None]
  - CORONARY ARTERY OCCLUSION [None]
  - DEEP VEIN THROMBOSIS [None]
  - DEHYDRATION [None]
  - DIABETES MELLITUS INADEQUATE CONTROL [None]
  - DILATATION VENTRICULAR [None]
  - ECONOMIC PROBLEM [None]
  - FLUID OVERLOAD [None]
  - GASTRIC ULCER HAEMORRHAGE [None]
  - GENERALISED OEDEMA [None]
  - HALLUCINATION [None]
  - HEART RATE INCREASED [None]
  - HYPERCAPNIA [None]
  - HYPERTENSION [None]
  - HYPOKALAEMIA [None]
  - LOBAR PNEUMONIA [None]
  - MUSCULOSKELETAL PAIN [None]
  - MYOCARDIAL INFARCTION [None]
  - OBSTRUCTIVE AIRWAYS DISORDER [None]
  - PARTNER STRESS [None]
  - PERIPHERAL VASCULAR DISORDER [None]
  - PLATELET COUNT DECREASED [None]
  - PNEUMONIA HAEMOPHILUS [None]
  - PULMONARY HILUM MASS [None]
  - PULMONARY HYPERTENSION [None]
  - RENAL FAILURE ACUTE [None]
  - RESPIRATORY DISTRESS [None]
  - RESPIRATORY FAILURE [None]
  - RIGHT VENTRICULAR FAILURE [None]
  - SKIN ULCER [None]
  - SOCIAL PROBLEM [None]
  - THROMBOCYTOPENIA [None]
  - URINARY TRACT INFECTION [None]
